FAERS Safety Report 12541779 (Version 2)
Quarter: 2016Q3

REPORT INFORMATION
  Report Type: Spontaneous
  Country: US (occurrence: US)
  Receive Date: 20160708
  Receipt Date: 20160715
  Transmission Date: 20161109
  Serious: Yes (Other)
  Sender: FDA-Public Use
  Company Number: US-TEVA-673269USA

PATIENT
  Age: 65 Year
  Sex: Male

DRUGS (3)
  1. GAZYVA [Suspect]
     Active Substance: OBINUTUZUMAB
     Indication: CHRONIC LYMPHOCYTIC LEUKAEMIA
     Route: 065
  2. LENALIDOMIDE [Suspect]
     Active Substance: LENALIDOMIDE
     Indication: CHRONIC LYMPHOCYTIC LEUKAEMIA
     Dosage: FOR 21 DAYS STARTING ON DAY 6 OF EACH CYCLE AT 5 MG/DAY; IN A 28 DAY CYCLE; 4 CYCLES
     Route: 065
  3. METHYLPREDNISOLONE. [Suspect]
     Active Substance: METHYLPREDNISOLONE
     Indication: CHRONIC LYMPHOCYTIC LEUKAEMIA
     Dosage: 1GM/M2 ONCE DAILY FOR 5DAYS AT THE START OF EACH OF 4 CYCLES (28 DAYS/CYCLE),
     Route: 065

REACTIONS (1)
  - Cytopenia [Recovering/Resolving]
